FAERS Safety Report 5756742-9 (Version None)
Quarter: 2008Q2

REPORT INFORMATION
  Report Type: 
  Country: None (occurrence: None)
  Receive Date: 20080603
  Receipt Date: 20080523
  Transmission Date: 20081010
  Serious: Yes (Hospitalization)
  Sender: FDA-Public Use
  Company Number: US-AVENTIS-200812687US

PATIENT

DRUGS (1)
  1. LOVENOX [Suspect]
     Indication: COLONOSCOPY
     Dates: start: 20080401

REACTIONS (3)
  - ASTHENIA [None]
  - NAUSEA [None]
  - TREMOR [None]
